FAERS Safety Report 19788341 (Version 3)
Quarter: 2021Q4

REPORT INFORMATION
  Report Type: Spontaneous
  Country: CN (occurrence: CN)
  Receive Date: 20210903
  Receipt Date: 20211108
  Transmission Date: 20220303
  Serious: Yes (Death, Hospitalization)
  Sender: FDA-Public Use
  Company Number: CN-CELGENE-CHN-20210804592

PATIENT
  Age: 57 Year
  Sex: Male
  Weight: 75 kg

DRUGS (14)
  1. LENALIDOMIDE [Suspect]
     Active Substance: LENALIDOMIDE
     Indication: Diffuse large B-cell lymphoma
     Dosage: 20 MILLIGRAM
     Route: 048
     Dates: start: 20210331, end: 20210727
  2. LENALIDOMIDE [Suspect]
     Active Substance: LENALIDOMIDE
     Indication: Off label use
     Dosage: 20 MILLIGRAM
     Route: 048
     Dates: start: 20210331, end: 20210809
  3. ZANUBRUTINIB [Suspect]
     Active Substance: ZANUBRUTINIB
     Indication: Diffuse large B-cell lymphoma
     Dosage: 320 MILLIGRAM
     Route: 048
     Dates: start: 20210303, end: 20210727
  4. ZANUBRUTINIB [Suspect]
     Active Substance: ZANUBRUTINIB
     Dosage: 320 MILLIGRAM
     Route: 048
     Dates: start: 20210303, end: 20210809
  5. CELLULOSE [Concomitant]
     Active Substance: POWDERED CELLULOSE
     Indication: Constipation
     Route: 048
     Dates: start: 2018, end: 20210821
  6. FOSCARNET SODIUM [Concomitant]
     Active Substance: FOSCARNET SODIUM
     Indication: Herpes zoster
     Dosage: 250 MILLILITER
     Route: 041
     Dates: start: 20210727, end: 20210806
  7. VALACYCLOVIR HYDROCHLORIDE [Concomitant]
     Active Substance: VALACYCLOVIR HYDROCHLORIDE
     Indication: Herpes zoster
     Dosage: 300 MILLIGRAM
     Route: 048
     Dates: start: 20210727, end: 20210808
  8. METHYLCOBALAMIN [Concomitant]
     Active Substance: METHYLCOBALAMIN
     Indication: Herpes zoster
     Dosage: .5 MILLIGRAM
     Route: 048
     Dates: start: 20210728, end: 20210808
  9. DEXAMETHASONE SODIUM PHOSPHATE [Concomitant]
     Active Substance: DEXAMETHASONE SODIUM PHOSPHATE
     Indication: Herpes zoster
     Dosage: 5 MILLIGRAM
     Route: 041
     Dates: start: 20210728, end: 20210730
  10. ACYCLOVIR [Concomitant]
     Active Substance: ACYCLOVIR
     Indication: Herpes zoster
     Route: 061
     Dates: start: 20210728, end: 20210808
  11. COBAMAMIDE [Concomitant]
     Active Substance: COBAMAMIDE
     Indication: Herpes zoster
     Dosage: 15 MILLIGRAM
     Route: 030
     Dates: start: 20210729, end: 20210806
  12. PREGABALIN [Concomitant]
     Active Substance: PREGABALIN
     Indication: Herpes zoster
     Dosage: 75 MILLIGRAM
     Route: 048
     Dates: start: 20210729, end: 20210808
  13. EPINEPHRINE [Concomitant]
     Active Substance: EPINEPHRINE
     Indication: Product used for unknown indication
     Dosage: DOSE-(1 MG X4)
     Route: 065
  14. NIKETHAMIDE [Concomitant]
     Active Substance: NIKETHAMIDE
     Indication: Product used for unknown indication
     Dosage: DOSE-(0.375 GRAM X2)
     Route: 065

REACTIONS (2)
  - Cardiopulmonary failure [Fatal]
  - Anaemia [Not Recovered/Not Resolved]

NARRATIVE: CASE EVENT DATE: 20210801
